FAERS Safety Report 4983932-5 (Version None)
Quarter: 2006Q2

REPORT INFORMATION
  Report Type: 
  Country: None (occurrence: None)
  Receive Date: 20060426
  Receipt Date: 20060403
  Transmission Date: 20061013
  Serious: Yes (Death)
  Sender: FDA-Public Use
  Company Number: US-MERCK-0604USA00323

PATIENT
  Age: 70 Year
  Sex: Male
  Weight: 109 kg

DRUGS (10)
  1. VIOXX [Suspect]
     Indication: ARTHRITIS
     Route: 048
     Dates: start: 20010414, end: 20030511
  2. ACCUPRIL [Concomitant]
     Route: 065
  3. BAYCOL [Concomitant]
     Route: 065
  4. ZOCOR [Concomitant]
     Route: 048
  5. OCUFLOX [Concomitant]
     Route: 065
  6. MAXZIDE [Concomitant]
     Route: 065
  7. CLARINEX [Concomitant]
     Route: 065
  8. TRIAMTERENE [Concomitant]
     Route: 065
  9. METHYLPREDNISOLONE [Concomitant]
     Route: 065
  10. CYCLOBENZAPRINE HYDROCHLORIDE [Concomitant]
     Route: 065

REACTIONS (2)
  - MYOCARDIAL INFARCTION [None]
  - SUDDEN DEATH [None]
